FAERS Safety Report 11373243 (Version 1)
Quarter: 2015Q3

REPORT INFORMATION
  Report Type: Spontaneous
  Country: US (occurrence: US)
  Receive Date: 20150811
  Receipt Date: 20150811
  Transmission Date: 20151125
  Serious: No
  Sender: FDA-Public Use
  Company Number: US-ELI_LILLY_AND_COMPANY-US201208006960

PATIENT
  Age: 55 Year
  Sex: Male

DRUGS (3)
  1. CHOLESTEROL [Concomitant]
     Active Substance: CHOLESTEROL
  2. CIALIS [Suspect]
     Active Substance: TADALAFIL
     Indication: ERECTILE DYSFUNCTION
     Dosage: 20 MG, UNK
  3. ANTIHYPERTENSIVES [Concomitant]
     Active Substance: UNSPECIFIED INGREDIENT

REACTIONS (3)
  - Drug ineffective [Unknown]
  - Diabetes mellitus [Unknown]
  - Prostatomegaly [Unknown]
